FAERS Safety Report 14057730 (Version 3)
Quarter: 2018Q3

REPORT INFORMATION
  Report Type: Spontaneous
  Country: US (occurrence: US)
  Receive Date: 20171006
  Receipt Date: 20180831
  Transmission Date: 20181010
  Serious: Yes (Death, Other)
  Sender: FDA-Public Use
  Company Number: US-009507513-1710USA001067

PATIENT
  Age: 75 Year
  Sex: Male

DRUGS (4)
  1. ZERBAXA [Suspect]
     Active Substance: CEFTOLOZANE SULFATE\TAZOBACTAM SODIUM
     Indication: WOUND INFECTION PSEUDOMONAS
     Dosage: 1.5 G, Q8H
     Route: 042
     Dates: start: 2015, end: 2015
  2. PRIMAXIN IV [Suspect]
     Active Substance: CILASTATIN SODIUM\IMIPENEM
     Indication: WOUND INFECTION PSEUDOMONAS
     Dosage: 1 G, Q8H (EXTENDED INFUSION OF 3 HOURS)
     Route: 042
     Dates: start: 2015
  3. CEFEPIME [Concomitant]
     Active Substance: CEFEPIME HYDROCHLORIDE
     Indication: WOUND INFECTION PSEUDOMONAS
     Dosage: UNK
     Dates: start: 2015, end: 2015
  4. VANCOMYCIN [Concomitant]
     Active Substance: VANCOMYCIN
     Indication: WOUND INFECTION PSEUDOMONAS
     Dosage: UNK
     Route: 042

REACTIONS (4)
  - Death [Fatal]
  - Pathogen resistance [Unknown]
  - Pathogen resistance [Unknown]
  - Off label use [Unknown]

NARRATIVE: CASE EVENT DATE: 2015
